FAERS Safety Report 10392371 (Version 1)
Quarter: 2014Q3

REPORT INFORMATION
  Report Type: Spontaneous
  Country: US (occurrence: None)
  Receive Date: 20140815
  Receipt Date: 20140815
  Transmission Date: 20150326
  Serious: No
  Sender: FDA-Public Use
  Company Number: 2013-17465

PATIENT
  Age: 74 Year
  Sex: Female
  Weight: 53 kg

DRUGS (5)
  1. ATENOLOL. [Concomitant]
     Active Substance: ATENOLOL
  2. ANASTROZOLE. [Suspect]
     Active Substance: ANASTROZOLE
     Indication: NEOPLASM PROPHYLAXIS
     Route: 048
     Dates: start: 201304
  3. ALENDRONATE SODIUM. [Suspect]
     Active Substance: ALENDRONATE SODIUM
     Indication: NEOPLASM PROPHYLAXIS
     Route: 048
     Dates: start: 201304, end: 201308
  4. ASPIRIN ( ACETYLSALICYLIC ACID) [Concomitant]
  5. CITRACAL/00751520/(CALCIUM CITRATE) [Concomitant]

REACTIONS (3)
  - Candida infection [None]
  - Onychoclasis [None]
  - Alopecia [None]

NARRATIVE: CASE EVENT DATE: 201304
